FAERS Safety Report 21154139 (Version 1)
Quarter: 2022Q3

REPORT INFORMATION
  Report Type: Spontaneous
  Country: US (occurrence: US)
  Receive Date: 20220801
  Receipt Date: 20220801
  Transmission Date: 20221027
  Serious: No
  Sender: FDA-Public Use
  Company Number: US-GLENMARK PHARMACEUTICALS-2022GMK072724

PATIENT

DRUGS (1)
  1. MUPIROCIN [Suspect]
     Active Substance: MUPIROCIN
     Indication: Paronychia
     Dosage: UNK UNK, TID
     Route: 061
     Dates: start: 20220517, end: 20220524

REACTIONS (4)
  - Infection [Recovering/Resolving]
  - Parosmia [Recovering/Resolving]
  - Pain [Recovering/Resolving]
  - Drug ineffective for unapproved indication [Unknown]

NARRATIVE: CASE EVENT DATE: 20220517
